FAERS Safety Report 7814706-5 (Version None)
Quarter: 2011Q4

REPORT INFORMATION
  Report Type: 
  Country: None (occurrence: None)
  Receive Date: 20111014
  Receipt Date: 20110929
  Transmission Date: 20120403
  Serious: Yes (Other)
  Sender: FDA-Public Use
  Company Number: US-ROCHE-1002375

PATIENT
  Sex: Female

DRUGS (10)
  1. ACCUTANE [Suspect]
     Dates: start: 20080401, end: 20081201
  2. CLARAVIS [Suspect]
     Dates: start: 20090801
  3. ACCUTANE [Suspect]
     Dates: start: 20060501, end: 20060801
  4. CLARAVIS [Suspect]
     Indication: ACNE
     Dates: start: 19960101, end: 19970101
  5. CLARAVIS [Suspect]
     Dates: start: 20080401, end: 20081201
  6. CLARAVIS [Suspect]
     Dates: start: 20060501, end: 20060801
  7. ACCUTANE [Suspect]
     Indication: ACNE
     Dates: start: 19960101, end: 19970101
  8. ACCUTANE [Suspect]
     Dates: start: 20090801
  9. CLARAVIS [Suspect]
     Dates: start: 20051101
  10. ACCUTANE [Suspect]
     Dates: start: 20051101

REACTIONS (2)
  - IRRITABLE BOWEL SYNDROME [None]
  - ANXIETY [None]
